FAERS Safety Report 6381778-7 (Version None)
Quarter: 2009Q3

REPORT INFORMATION
  Report Type: 
  Country: None (occurrence: None)
  Receive Date: 20090930
  Receipt Date: 20090924
  Transmission Date: 20100115
  Serious: Yes (Hospitalization, Other)
  Sender: FDA-Public Use
  Company Number: US-RANBAXY-2009US-26567

PATIENT

DRUGS (3)
  1. SIMVASTATIN [Suspect]
     Indication: BLOOD CHOLESTEROL INCREASED
     Dosage: 40 MG, QD
     Route: 048
     Dates: start: 20090618, end: 20090815
  2. LIPITOR [Suspect]
     Indication: BLOOD CHOLESTEROL INCREASED
     Route: 065
  3. GLIMEPIRIDE [Concomitant]
     Indication: DIABETES MELLITUS
     Dosage: 2 MG, UNK
     Route: 065
     Dates: start: 20090601

REACTIONS (11)
  - ABDOMINAL DISTENSION [None]
  - CHEST PAIN [None]
  - DECREASED APPETITE [None]
  - GASTROOESOPHAGEAL REFLUX DISEASE [None]
  - INSOMNIA [None]
  - JAUNDICE [None]
  - NAUSEA [None]
  - PANCREATIC CARCINOMA [None]
  - URINE COLOUR ABNORMAL [None]
  - VOMITING [None]
  - WEIGHT DECREASED [None]
